FAERS Safety Report 9855129 (Version 1)
Quarter: 2013Q4

REPORT INFORMATION
  Report Type: Spontaneous
  Country: US (occurrence: None)
  Receive Date: 20131226
  Receipt Date: 20131226
  Transmission Date: 20140711
  Serious: Yes (Death)
  Sender: FDA-Public Use
  Company Number: PHEH2012US008295

PATIENT
  Age: 72 Year
  Sex: Female

DRUGS (10)
  1. AFINITOR (RAD) [Suspect]
     Route: 048
  2. NORCO (HYDROCODONE BITARTRATE, PARACETAMOL) [Concomitant]
  3. LEVOTHYROXINE (LEVOTHYROXINE) [Concomitant]
  4. PANTOPRAZOLE (PANTOPRAZOLE) [Concomitant]
  5. AMOXICILLIN (AMOXICILLIN) [Concomitant]
  6. MUCINEX [Concomitant]
  7. COLACE [Concomitant]
  8. MULTIVITAMIN (VITAMINS NOS) [Concomitant]
  9. VITAMIN D (ERGOCALCIFEROL) [Concomitant]
  10. VITAMIN B12 (VITAMIN B12) [Concomitant]

REACTIONS (2)
  - Neoplasm [None]
  - Malignant neoplasm progression [None]
